FAERS Safety Report 20563524 (Version 2)
Quarter: 2022Q2

REPORT INFORMATION
  Report Type: Spontaneous
  Country: JP (occurrence: JP)
  Receive Date: 20220308
  Receipt Date: 20220401
  Transmission Date: 20220721
  Serious: No
  Sender: FDA-Public Use
  Company Number: JP-GSKNCCC-Case-01435405_AE-55443

PATIENT
  Age: 80 Year
  Sex: Male

DRUGS (10)
  1. SOTROVIMAB [Suspect]
     Active Substance: SOTROVIMAB
     Indication: COVID-19
     Dosage: 500 MG/100 ML/65 MIN, DILUTED WITH NORMAL SALINE 100 ML
     Dates: start: 20220228, end: 20220228
  2. APIDRA SOLOSTAR [Concomitant]
     Active Substance: INSULIN GLULISINE
     Dosage: UNK
  3. TRESIBA [Concomitant]
     Active Substance: INSULIN DEGLUDEC
     Dosage: UNK
  4. DAPAGLIFLOZIN [Concomitant]
     Active Substance: DAPAGLIFLOZIN
     Dosage: 5 MG, QD, AFTER BREAKFAST
  5. CLOPIDOGREL BISULFATE [Concomitant]
     Active Substance: CLOPIDOGREL BISULFATE
     Dosage: 1 DF, QD, AFTER BREAKFAST
  6. CABPIRIN [Concomitant]
     Dosage: 1 DF, QD, AFTER BREAKFAST
  7. MAGNESIUM OXIDE [Concomitant]
     Active Substance: MAGNESIUM OXIDE
     Dosage: 660 MG, TID, AFTER BREAKFAST, LUNCH, DINNER
  8. SENNOSIDES [Concomitant]
     Active Substance: SENNOSIDES
     Dosage: 3 DF, QD, BEFORE SLEEP
  9. SYAKUYAKU-KANZO-TO [Concomitant]
     Dosage: 2.5 G, QD, BEFORE SLEEP
  10. LOXOPROFEN SODIUM TAPE [Concomitant]
     Dosage: UNK

REACTIONS (3)
  - Vomiting [Recovered/Resolved]
  - Nausea [Recovered/Resolved]
  - Infusion related reaction [Recovered/Resolved]

NARRATIVE: CASE EVENT DATE: 20220228
